FAERS Safety Report 4395791-2 (Version None)
Quarter: 2004Q3

REPORT INFORMATION
  Report Type: 
  Country: None (occurrence: None)
  Receive Date: 20040713
  Receipt Date: 20040129
  Transmission Date: 20050211
  Serious: Yes (Life-Threatening, Hospitalization)
  Sender: FDA-Public Use
  Company Number: DE-ROCHE-357398

PATIENT
  Age: 57 Year
  Sex: Female

DRUGS (33)
  1. DACLIZUMAB [Suspect]
     Route: 042
     Dates: start: 20040120, end: 20040120
  2. DACLIZUMAB [Suspect]
     Route: 042
     Dates: end: 20040316
  3. MYCOPHENOLATE MOFETIL [Suspect]
     Route: 048
     Dates: start: 20040120
  4. MYCOPHENOLATE MOFETIL [Suspect]
     Route: 048
     Dates: start: 20040121
  5. MYCOPHENOLATE MOFETIL [Suspect]
     Route: 048
     Dates: start: 20040331
  6. MYCOPHENOLATE MOFETIL [Suspect]
     Route: 048
     Dates: start: 20040407
  7. MYCOPHENOLATE MOFETIL [Suspect]
     Route: 048
     Dates: start: 20040420, end: 20040616
  8. TACROLIMUS [Suspect]
     Route: 048
     Dates: start: 20040120
  9. TACROLIMUS [Suspect]
     Route: 048
     Dates: start: 20040121
  10. TACROLIMUS [Suspect]
     Route: 048
     Dates: start: 20040123
  11. TACROLIMUS [Suspect]
     Route: 048
     Dates: start: 20040125
  12. TACROLIMUS [Suspect]
     Route: 048
     Dates: start: 20040127
  13. TACROLIMUS [Suspect]
     Route: 048
     Dates: start: 20040128
  14. TACROLIMUS [Suspect]
     Route: 048
     Dates: start: 20040130
  15. TACROLIMUS [Suspect]
     Route: 048
     Dates: start: 20040131
  16. TACROLIMUS [Suspect]
     Route: 048
     Dates: start: 20040201
  17. TACROLIMUS [Suspect]
     Route: 048
     Dates: start: 20040203
  18. TACROLIMUS [Suspect]
     Route: 048
     Dates: start: 20040204
  19. TACROLIMUS [Suspect]
     Route: 048
     Dates: start: 20040210
  20. TACROLIMUS [Suspect]
     Route: 048
     Dates: start: 20040211
  21. TACROLIMUS [Suspect]
     Route: 048
     Dates: start: 20040217
  22. TACROLIMUS [Suspect]
     Route: 048
     Dates: start: 20040325
  23. TACROLIMUS [Suspect]
     Route: 048
     Dates: start: 20040407
  24. TACROLIMUS [Suspect]
     Route: 048
     Dates: start: 20040420
  25. TACROLIMUS [Suspect]
     Route: 048
     Dates: start: 20040616
  26. DECORTIN H [Suspect]
     Route: 048
     Dates: start: 20040122
  27. DECORTIN H [Suspect]
     Route: 048
     Dates: start: 20040204
  28. DECORTIN H [Suspect]
     Route: 048
     Dates: start: 20040217
  29. DECORTIN H [Suspect]
     Route: 048
     Dates: start: 20040325
  30. SOLU-DECORTIN [Suspect]
     Route: 065
     Dates: start: 20040120
  31. SOLU-DECORTIN [Suspect]
     Route: 065
     Dates: start: 20040121, end: 20040122
  32. ATG [Suspect]
     Indication: DRUG USE FOR UNKNOWN INDICATION
     Route: 042
     Dates: start: 20040123, end: 20040127
  33. HEPARIN [Suspect]
     Indication: DRUG USE FOR UNKNOWN INDICATION
     Route: 042
     Dates: start: 20040122, end: 20040127

REACTIONS (4)
  - CYTOMEGALOVIRUS INFECTION [None]
  - HAEMORRHAGE SUBCUTANEOUS [None]
  - THROMBOSIS [None]
  - TRANSPLANT REJECTION [None]
